FAERS Safety Report 9527530 (Version 1)
Quarter: 2013Q1

REPORT INFORMATION
  Report Type: Spontaneous
  Country: US (occurrence: None)
  Receive Date: 20130314
  Receipt Date: 20130314
  Transmission Date: 20140127
  Serious: No
  Sender: FDA-Public Use
  Company Number: 1211USA001225

PATIENT
  Age: 46 Year
  Sex: Male

DRUGS (3)
  1. VICTRELIS (BOCEPREVIR) CAPSULE [Suspect]
     Indication: HEPATITIS C
     Dates: start: 20121119
  2. RIBAVIRIN (RIBAVIRIN) CAPSULE [Suspect]
     Indication: HEPATITIS C
     Route: 048
     Dates: start: 20121022, end: 201301
  3. PEGASYS (PEGINTERFERON ALFA-2A) [Suspect]
     Dates: start: 20121022

REACTIONS (8)
  - Injection site reaction [None]
  - Asthenia [None]
  - Decreased appetite [None]
  - Fatigue [None]
  - Myalgia [None]
  - Anaemia [None]
  - Haemoglobin decreased [None]
  - Dizziness [None]
